FAERS Safety Report 13089571 (Version 1)
Quarter: 2016Q4

REPORT INFORMATION
  Report Type: Spontaneous
  Country: US (occurrence: US)
  Receive Date: 20161230
  Receipt Date: 20161230
  Transmission Date: 20170207
  Serious: Yes (Death)
  Sender: FDA-Public Use
  Company Number: None

PATIENT
  Age: 84 Year
  Sex: Female

DRUGS (1)
  1. REVLIMID [Suspect]
     Active Substance: LENALIDOMIDE
     Indication: LYMPHOMA
     Route: 048
     Dates: start: 20161206

REACTIONS (6)
  - Malignant neoplasm progression [None]
  - Life expectancy shortened [None]
  - Malignant ascites [None]
  - Acute kidney injury [None]
  - Gastrointestinal disorder [None]
  - Lymphoma [None]

NARRATIVE: CASE EVENT DATE: 20161212
